FAERS Safety Report 5259929-7 (Version None)
Quarter: 2007Q1

REPORT INFORMATION
  Report Type: 
  Country: None (occurrence: None)
  Receive Date: 20070309
  Receipt Date: 20070307
  Transmission Date: 20070707
  Serious: Yes (Other)
  Sender: FDA-Public Use
  Company Number: US-GLAXOSMITHKLINE-A0642192A

PATIENT
  Sex: Male

DRUGS (7)
  1. AVANDIA [Suspect]
     Dosage: 4MG PER DAY
     Route: 048
  2. ZETIA [Concomitant]
  3. LISINOPRIL [Concomitant]
  4. INSULIN [Concomitant]
  5. LIPITOR [Concomitant]
  6. VITAMINS [Concomitant]
  7. FISH OIL [Concomitant]

REACTIONS (7)
  - CHEST PAIN [None]
  - CHROMATURIA [None]
  - FAECES DISCOLOURED [None]
  - FATIGUE [None]
  - GASTRIC ULCER [None]
  - IRON DEFICIENCY ANAEMIA [None]
  - OEDEMA PERIPHERAL [None]
